FAERS Safety Report 5217234-9 (Version None)
Quarter: 2007Q1

REPORT INFORMATION
  Report Type: 
  Country: None (occurrence: None)
  Receive Date: 20070122
  Receipt Date: 20070122
  Transmission Date: 20070707
  Serious: Yes (Hospitalization, Other)
  Sender: FDA-Public Use
  Company Number: None

PATIENT
  Age: 46 Year
  Sex: Male
  Weight: 117.028 kg

DRUGS (10)
  1. NIASPAN [Suspect]
     Indication: HIGH DENSITY LIPOPROTEIN DECREASED
     Dates: start: 20060717
  2. CITALOPRAM [Concomitant]
  3. GABAPENTIN [Concomitant]
  4. HYDROCHLOROTHIAZIDE [Concomitant]
  5. METFORMIN HCL [Concomitant]
  6. ACETAM. [Concomitant]
  7. SIMVASTATIN [Concomitant]
  8. VARDENAFIL [Concomitant]
  9. LISINOPRIL [Concomitant]
  10. WARFARIN SODIUM [Concomitant]

REACTIONS (8)
  - ERYTHEMA [None]
  - FEELING ABNORMAL [None]
  - FEELING HOT [None]
  - FLUSHING [None]
  - HYPERHIDROSIS [None]
  - HYPERSENSITIVITY [None]
  - RASH MACULAR [None]
  - SKIN DISCOLOURATION [None]
